FAERS Safety Report 4377216-6 (Version None)
Quarter: 2004Q2

REPORT INFORMATION
  Report Type: 
  Country: None (occurrence: None)
  Receive Date: 20040609
  Receipt Date: 20040217
  Transmission Date: 20050107
  Serious: No
  Sender: FDA-Public Use
  Company Number: 2004199803US

PATIENT
  Age: 57 Year
  Sex: Female

DRUGS (7)
  1. BEXTRA [Suspect]
     Indication: OSTEOARTHRITIS
     Dosage: 10 MG, QD,
     Dates: start: 20040207, end: 20040212
  2. LEVOXYL [Concomitant]
  3. ESTRADIOL [Concomitant]
  4. ASPIRIN [Concomitant]
  5. DESLORATADINE (DESLORATADINE) [Concomitant]
  6. PREVACID [Concomitant]
  7. MULTIVITAMIN [Concomitant]

REACTIONS (2)
  - DRY SKIN [None]
  - NAIL DISORDER [None]
